FAERS Safety Report 4299629-3 (Version None)
Quarter: 2004Q1

REPORT INFORMATION
  Report Type: 
  Country: None (occurrence: None)
  Receive Date: 20040217
  Receipt Date: 20040204
  Transmission Date: 20041129
  Serious: Yes (Hospitalization, Disabling, Other)
  Sender: FDA-Public Use
  Company Number: 2002059028

PATIENT
  Age: 75 Year
  Sex: Female
  Weight: 40.8237 kg

DRUGS (4)
  1. DILANTIN [Suspect]
     Indication: CONVULSION
     Dosage: 200 MG (100 MG, BID), ORAL
     Route: 048
     Dates: start: 20020301, end: 20020101
  2. AMLODIPINE [Concomitant]
  3. MULTIVITAMINS (ERGOCALCIFEROL/ASCORBIC ACID, FOLIC ACID, THIAMINE HYDR [Concomitant]
  4. ACETYLSALICYLIC ACID SRT [Concomitant]

REACTIONS (9)
  - ASTHENIA [None]
  - CONVULSION [None]
  - DRUG LEVEL BELOW THERAPEUTIC [None]
  - DYSPHAGIA [None]
  - OVERDOSE [None]
  - OXYGEN SATURATION DECREASED [None]
  - PHARMACEUTICAL PRODUCT COMPLAINT [None]
  - SOMNOLENCE [None]
  - WEIGHT DECREASED [None]
